FAERS Safety Report 23921389 (Version 1)
Quarter: 2024Q2

REPORT INFORMATION
  Report Type: Spontaneous
  Country: PT (occurrence: PT)
  Receive Date: 20240530
  Receipt Date: 20240530
  Transmission Date: 20240716
  Serious: Yes (Hospitalization)
  Sender: FDA-Public Use
  Company Number: PT-VIRTUS PHARMACEUTICALS, LLC-2024VTS00010

PATIENT
  Age: 47 Year
  Sex: Female

DRUGS (2)
  1. ALBUTEROL [Suspect]
     Active Substance: ALBUTEROL
     Indication: Asthma
     Dosage: 100 UG
  2. ALBUTEROL [Suspect]
     Active Substance: ALBUTEROL
     Dosage: UP TO 2 FULL INHALERS (400 DOSES) DURING THE WEEK

REACTIONS (1)
  - Stress cardiomyopathy [Recovered/Resolved]
